FAERS Safety Report 13805446 (Version 1)
Quarter: 2017Q3

REPORT INFORMATION
  Report Type: Spontaneous
  Country: US (occurrence: US)
  Receive Date: 20170728
  Receipt Date: 20170728
  Transmission Date: 20171127
  Serious: No
  Sender: FDA-Public Use
  Company Number: None

PATIENT
  Age: 66 Year
  Sex: Female

DRUGS (2)
  1. SOVALDI [Suspect]
     Active Substance: SOFOSBUVIR
  2. DAKLINZA [Concomitant]
     Active Substance: DACLATASVIR

REACTIONS (4)
  - Fatigue [None]
  - Blood pressure abnormal [None]
  - Influenza like illness [None]
  - Dizziness [None]

NARRATIVE: CASE EVENT DATE: 20170728
